FAERS Safety Report 4583973-6 (Version None)
Quarter: 2005Q1

REPORT INFORMATION
  Report Type: 
  Country: None (occurrence: None)
  Receive Date: 20050216
  Receipt Date: 20050204
  Transmission Date: 20050727
  Serious: Yes (Other)
  Sender: FDA-Public Use
  Company Number: IT-BRISTOL-MYERS SQUIBB COMPANY-12850368

PATIENT
  Age: 49 Year
  Sex: Male

DRUGS (9)
  1. ETOPOSIDE [Suspect]
     Indication: HODGKIN'S DISEASE
     Dosage: ADMINISTERED ON DAY 29 OF CYCLE
     Route: 042
  2. CYCLOPHOSPHAMIDE [Suspect]
     Indication: HODGKIN'S DISEASE
     Dosage: ADMINISTERED ON DAY 15 OF CYCLE
     Route: 042
  3. VINCRISTINE [Suspect]
     Indication: HODGKIN'S DISEASE
     Dosage: ADMINISTERED ON DAY 1 OF CYCLE
     Route: 040
  4. PREDNISONE [Suspect]
     Indication: HODGKIN'S DISEASE
     Dosage: ADMINISTERED ON DAY 1 OF CYCLE
     Route: 042
  5. PREDNISONE [Suspect]
     Dosage: TAKEN ON DAYS 2 THROUGH 5 OF CYCLE
     Route: 048
  6. EPIRUBICIN [Suspect]
     Indication: HODGKIN'S DISEASE
     Dosage: ADMINISTERED ON DAY 1 OF CYCLE
     Route: 042
  7. RADIATION THERAPY [Concomitant]
     Indication: HODGKIN'S DISEASE
     Dosage: DOSE RANGED FROM 30.6 GRAY TO 40 GRAY
  8. DOXORUBICIN [Concomitant]
     Indication: HODGKIN'S DISEASE
  9. CALCIUM ANTAGONIST [Concomitant]
     Indication: HYPERTENSION

REACTIONS (1)
  - MYOCARDIAL INFARCTION [None]
